FAERS Safety Report 16445262 (Version 1)
Quarter: 2019Q2

REPORT INFORMATION
  Report Type: Report from Study
  Country: DE (occurrence: DE)
  Receive Date: 20190618
  Receipt Date: 20190618
  Transmission Date: 20190711
  Serious: Yes (Hospitalization)
  Sender: FDA-Public Use
  Company Number: DE-MYLANLABS-2019M1055640

PATIENT
  Sex: Female

DRUGS (12)
  1. REMICADE [Suspect]
     Active Substance: INFLIXIMAB
     Indication: PRODUCT USED FOR UNKNOWN INDICATION
     Dosage: 300MG. UNK
     Route: 065
     Dates: start: 201511
  2. REMICADE [Suspect]
     Active Substance: INFLIXIMAB
     Dosage: 300 MG, UNK
     Route: 065
     Dates: start: 201606
  3. LEFLUNOMIDE. [Suspect]
     Active Substance: LEFLUNOMIDE
     Indication: PRODUCT USED FOR UNKNOWN INDICATION
     Dosage: 10MG, UNK
     Route: 065
     Dates: start: 20170412
  4. METHOTREXATE. [Suspect]
     Active Substance: METHOTREXATE
     Dosage: 7.5MG, UNK
     Route: 065
     Dates: start: 20160315
  5. METHOTREXATE. [Suspect]
     Active Substance: METHOTREXATE
     Dosage: 7.5MG, UNK
     Route: 065
     Dates: start: 20161128
  6. LEFLUNOMIDE. [Suspect]
     Active Substance: LEFLUNOMIDE
     Dosage: 10 MG, UNK
     Route: 065
     Dates: start: 20171115
  7. METHOTREXATE. [Suspect]
     Active Substance: METHOTREXATE
     Dosage: 7.5 MG, UNK
     Route: 065
     Dates: start: 20170412
  8. METHOTREXATE. [Suspect]
     Active Substance: METHOTREXATE
     Dosage: 7.5MG, UNK
     Route: 065
     Dates: start: 20171115
  9. METHOTREXATE. [Suspect]
     Active Substance: METHOTREXATE
     Indication: PRODUCT USED FOR UNKNOWN INDICATION
     Dosage: 7.5MG, UNK
     Route: 065
     Dates: start: 20151130
  10. METHOTREXATE. [Suspect]
     Active Substance: METHOTREXATE
     Dosage: 7.5MG, UNK
     Route: 065
     Dates: start: 20160504
  11. REMICADE [Suspect]
     Active Substance: INFLIXIMAB
     Dosage: 300MG, UNK
     Route: 065
     Dates: start: 20160315
  12. XELJANZ [Suspect]
     Active Substance: TOFACITINIB CITRATE
     Indication: PRODUCT USED FOR UNKNOWN INDICATION
     Dosage: 10 MG, UNK
     Route: 065
     Dates: start: 201708

REACTIONS (7)
  - Chondromalacia [Unknown]
  - Urinary tract infection [Unknown]
  - Pulmonary mass [Unknown]
  - Pain [Unknown]
  - Diarrhoea [Unknown]
  - Rheumatoid arthritis [Recovered/Resolved]
  - Rheumatoid nodule [Unknown]

NARRATIVE: CASE EVENT DATE: 20161031
